FAERS Safety Report 9931063 (Version 2)
Quarter: 2014Q1

REPORT INFORMATION
  Report Type: Report from Study
  Country: NZ (occurrence: NZ)
  Receive Date: 20140227
  Receipt Date: 20140227
  Transmission Date: 20141002
  Serious: Yes (Death)
  Sender: FDA-Public Use
  Company Number: PHHY2012NZ023789

PATIENT
  Age: 47 Year
  Sex: Male

DRUGS (2)
  1. CLOZARIL [Suspect]
     Indication: SCHIZOPHRENIA
     Route: 048
     Dates: start: 19980611
  2. SODIUM VALPROATE [Concomitant]
     Dosage: 1200 MG, BID

REACTIONS (3)
  - Completed suicide [Fatal]
  - Multiple fractures [Fatal]
  - Injury [Fatal]
